APPROVED DRUG PRODUCT: CLOLAR
Active Ingredient: CLOFARABINE
Strength: 20MG/20ML (1MG/ML)
Dosage Form/Route: SOLUTION;INTRAVENOUS
Application: N021673 | Product #001
Applicant: GENZYME CORP
Approved: Dec 28, 2004 | RLD: Yes | RS: No | Type: DISCN